FAERS Safety Report 8363099-6 (Version None)
Quarter: 2012Q2

REPORT INFORMATION
  Report Type: 
  Country: None (occurrence: None)
  Receive Date: 20120516
  Receipt Date: 20120509
  Transmission Date: 20120825
  Serious: Yes (Hospitalization)
  Sender: FDA-Public Use
  Company Number: FR-SANOFI-AVENTIS-2012SA032656

PATIENT
  Age: 56 Year
  Sex: Male

DRUGS (4)
  1. GLYBURIDE [Suspect]
     Route: 048
     Dates: start: 20120206, end: 20120220
  2. JANUVIA [Suspect]
     Route: 048
     Dates: start: 20120206, end: 20120220
  3. PRAVASTATIN SODIUM [Suspect]
     Route: 048
     Dates: start: 20120206, end: 20120220
  4. METFORMIN HCL [Concomitant]
     Route: 048

REACTIONS (3)
  - HYPERLIPASAEMIA [None]
  - OVERDOSE [None]
  - HYPOGLYCAEMIA [None]
